FAERS Safety Report 8592919 (Version 3)
Quarter: 2013Q3

REPORT INFORMATION
  Report Type: Spontaneous
  Country: US (occurrence: US)
  Receive Date: 20120604
  Receipt Date: 20130717
  Transmission Date: 20140515
  Serious: Yes (Death, Other)
  Sender: FDA-Public Use
  Company Number: US-ASTRAZENECA-2012SE34853

PATIENT
  Age: 58 Year
  Sex: Female

DRUGS (2)
  1. NEXIUM [Suspect]
     Dosage: THREE TIMES A DAY
     Route: 048
  2. MILK OF MAGNESIA [Concomitant]

REACTIONS (6)
  - Coronary artery disease [Fatal]
  - Hypertension [Fatal]
  - Diabetes mellitus inadequate control [Fatal]
  - Tobacco abuse [Unknown]
  - Osteoporosis [Unknown]
  - Multiple fractures [Unknown]
